FAERS Safety Report 7070545-7 (Version None)
Quarter: 2010Q4

REPORT INFORMATION
  Report Type: 
  Country: None (occurrence: None)
  Receive Date: 20101029
  Receipt Date: 20101018
  Transmission Date: 20110411
  Serious: Yes (Hospitalization)
  Sender: FDA-Public Use
  Company Number: JP-ELI_LILLY_AND_COMPANY-JP201010003689

PATIENT
  Age: 79 Year
  Sex: Male
  Weight: 47 kg

DRUGS (13)
  1. PEMETREXED [Suspect]
     Indication: LUNG ADENOCARCINOMA STAGE III
     Dosage: 710 MG, OTHER
     Route: 042
     Dates: start: 20091102, end: 20091102
  2. HYDROXOCOBALAMIN ACETATE [Concomitant]
     Dates: start: 20091021
  3. PANVITAN [Concomitant]
     Dosage: 1 G, DAILY (1/D), 0.5MG AS FOLIC ACID
     Dates: start: 20091022, end: 20091125
  4. DECADRON /00016002/ [Concomitant]
     Dosage: UNK, UNKNOWN
     Dates: start: 20091102, end: 20091102
  5. NEOPHAGEN [Concomitant]
     Indication: HEPATIC FUNCTION ABNORMAL
     Dosage: UNK, UNKNOWN
     Dates: start: 20091106, end: 20091217
  6. PROHEPARUM [Concomitant]
     Indication: HEPATIC FUNCTION ABNORMAL
     Dosage: UNK, 3/D
     Dates: start: 20091106
  7. BIOFERMIN [Concomitant]
     Dosage: UNK, 3/D
     Dates: end: 20091214
  8. MUCODYNE [Concomitant]
     Dosage: UNK, 3/D
     Dates: end: 20091217
  9. TAKEPRON [Concomitant]
     Dosage: UNK, DAILY (1/D)
     Dates: end: 20091217
  10. MUCOSOLVAN [Concomitant]
     Dosage: UNK, UNKNOWN
     Dates: end: 20091217
  11. BISOLVON [Concomitant]
     Dosage: UNK, UNKNOWN
  12. MAGLAX [Concomitant]
     Dosage: UNK, UNKNOWN
  13. BROCIN-CODEINE [Concomitant]
     Dosage: UNK, 3/D

REACTIONS (4)
  - C-REACTIVE PROTEIN INCREASED [None]
  - HYPOXIA [None]
  - PNEUMONIA [None]
  - PYREXIA [None]
